FAERS Safety Report 5724795-X (Version None)
Quarter: 2008Q2

REPORT INFORMATION
  Report Type: 
  Country: None (occurrence: None)
  Receive Date: 20080421
  Receipt Date: 20080409
  Transmission Date: 20081010
  Serious: Yes (Hospitalization)
  Sender: FDA-Public Use
  Company Number: WSDF_00674

PATIENT
  Age: 5 Year
  Sex: Male

DRUGS (1)
  1. WINRHO SDF [Suspect]
     Indication: IDIOPATHIC THROMBOCYTOPENIC PURPURA
     Dosage: 50 ML ONCE IV
     Route: 042
     Dates: start: 20070819, end: 20070819

REACTIONS (7)
  - BLOOD PRESSURE DECREASED [None]
  - DRUG HYPERSENSITIVITY [None]
  - HAEMOGLOBIN DECREASED [None]
  - HAEMOLYSIS [None]
  - INFUSION RELATED REACTION [None]
  - RESPIRATORY RATE INCREASED [None]
  - VIRAL INFECTION [None]
